FAERS Safety Report 4299255-6 (Version None)
Quarter: 2004Q1

REPORT INFORMATION
  Report Type: 
  Country: None (occurrence: None)
  Receive Date: 20040217
  Receipt Date: 20040203
  Transmission Date: 20041129
  Serious: Yes (Hospitalization)
  Sender: FDA-Public Use
  Company Number: US-JNJFOC-20040200802

PATIENT
  Age: 64 Year
  Sex: Female
  Weight: 62.1428 kg

DRUGS (7)
  1. REMICADE [Suspect]
     Indication: RHEUMATOID ARTHRITIS
     Dosage: SEE IMAGE
     Route: 042
     Dates: start: 20020401
  2. REMICADE [Suspect]
     Indication: RHEUMATOID ARTHRITIS
     Dosage: SEE IMAGE
     Route: 042
     Dates: start: 20040124
  3. ALTACE [Concomitant]
  4. ELAVIL [Concomitant]
  5. DIFLUCAN [Concomitant]
  6. LEVAQUIN [Concomitant]
  7. FLAGYL [Concomitant]

REACTIONS (3)
  - DIVERTICULITIS [None]
  - GASTROENTERITIS [None]
  - VOMITING [None]
